FAERS Safety Report 8284600-7 (Version None)
Quarter: 2012Q2

REPORT INFORMATION
  Report Type: 
  Country: None (occurrence: None)
  Receive Date: 20120413
  Receipt Date: 20120130
  Transmission Date: 20120825
  Serious: No
  Sender: FDA-Public Use
  Company Number: US-ASTRAZENECA-2010SE36688

PATIENT
  Age: 57 Year
  Sex: Female

DRUGS (4)
  1. NEXIUM [Suspect]
     Indication: GASTROOESOPHAGEAL REFLUX DISEASE
     Route: 048
  2. MYLANTA [Concomitant]
  3. PRILOSEC [Suspect]
     Dosage: GENERIC.
     Route: 048
  4. LEVOTHYROXINE SODIUM [Concomitant]

REACTIONS (11)
  - DYSPEPSIA [None]
  - BLOOD CHOLESTEROL ABNORMAL [None]
  - DEPRESSED MOOD [None]
  - COUGH [None]
  - VOMITING [None]
  - GASTROOESOPHAGEAL REFLUX DISEASE [None]
  - DRUG DOSE OMISSION [None]
  - DYSPNOEA [None]
  - INSOMNIA [None]
  - DRUG INEFFECTIVE [None]
  - APHONIA [None]
